FAERS Safety Report 8909985 (Version 1)
Quarter: 2012Q4

REPORT INFORMATION
  Report Type: 
  Country: US (occurrence: US)
  Receive Date: 20121115
  Receipt Date: 20121115
  Transmission Date: 20130627
  Serious: No
  Sender: FDA-Public Use
  Company Number: US-PFIZER INC-2012285608

PATIENT
  Age: 37 Year
  Sex: Male
  Weight: 116 kg

DRUGS (4)
  1. LYRICA [Suspect]
     Indication: NEUROPATHY PERIPHERAL
     Dosage: 75 mg, 2x/day
     Dates: end: 20121111
  2. METFORMIN [Concomitant]
     Indication: DIABETES
     Dosage: 1000 mg, 2x/day
  3. CYMBALTA [Concomitant]
     Indication: DEPRESSION
     Dosage: 60 mg, daily
  4. FLEXERIL [Concomitant]
     Indication: BACK PAIN
     Dosage: 10 mg, 2x/day

REACTIONS (3)
  - Confusional state [Recovering/Resolving]
  - Feeling abnormal [Recovering/Resolving]
  - Dysphoria [Recovering/Resolving]
